FAERS Safety Report 13185371 (Version 1)
Quarter: 2017Q1

REPORT INFORMATION
  Report Type: Spontaneous
  Country: US (occurrence: US)
  Receive Date: 20170203
  Receipt Date: 20170203
  Transmission Date: 20170428
  Serious: Yes (Hospitalization)
  Sender: FDA-Public Use
  Company Number: US-FRESENIUS KABI-FK201700867

PATIENT
  Sex: Female
  Weight: 55 kg

DRUGS (3)
  1. AMATUXIMAB [Suspect]
     Active Substance: AMATUXIMAB
     Indication: PLEURAL MESOTHELIOMA
     Route: 042
     Dates: start: 20161129, end: 20161213
  2. PEMETREXED [Suspect]
     Active Substance: PEMETREXED
     Indication: PLEURAL MESOTHELIOMA
     Route: 042
     Dates: start: 20161129, end: 20161213
  3. CISPLATIN (MANUFACTURER UNKNOWN) [Suspect]
     Active Substance: CISPLATIN
     Indication: PLEURAL MESOTHELIOMA
     Route: 042
     Dates: start: 20161129, end: 20161129

REACTIONS (3)
  - General physical health deterioration [None]
  - Malaise [Recovered/Resolved]
  - Nausea [Recovered/Resolved]

NARRATIVE: CASE EVENT DATE: 20161220
